FAERS Safety Report 25595878 (Version 1)
Quarter: 2025Q3

REPORT INFORMATION
  Report Type: Spontaneous
  Country: US (occurrence: US)
  Receive Date: 20250723
  Receipt Date: 20250723
  Transmission Date: 20251021
  Serious: No
  Sender: AMGEN
  Company Number: US-AMGEN-USASP2025145757

PATIENT
  Sex: Female

DRUGS (1)
  1. IMDELLTRA [Suspect]
     Active Substance: TARLATAMAB-DLLE
     Indication: Small cell lung cancer extensive stage
     Route: 065
     Dates: start: 20250716

REACTIONS (4)
  - Cough [Unknown]
  - Vomiting [Unknown]
  - Pyrexia [Unknown]
  - Nausea [Unknown]

NARRATIVE: CASE EVENT DATE: 20250701
